FAERS Safety Report 6181324-7 (Version None)
Quarter: 2009Q2

REPORT INFORMATION
  Report Type: 
  Country: None (occurrence: None)
  Receive Date: 20090506
  Receipt Date: 20090428
  Transmission Date: 20091009
  Serious: Yes (Hospitalization, Other)
  Sender: FDA-Public Use
  Company Number: US-ABBOTT-09P-163-0568759-00

PATIENT
  Sex: Male
  Weight: 136.2 kg

DRUGS (5)
  1. DEPAKOTE ER [Suspect]
     Indication: SCHIZOAFFECTIVE DISORDER BIPOLAR TYPE
     Route: 048
     Dates: start: 19940101, end: 20071001
  2. DEPAKOTE ER [Suspect]
     Indication: MANIA
     Route: 048
     Dates: end: 20090101
  3. DEPAKOTE ER [Suspect]
     Route: 048
     Dates: start: 20090101
  4. CLOZARIL [Suspect]
     Indication: DRUG USE FOR UNKNOWN INDICATION
  5. CLOZARIL [Concomitant]

REACTIONS (7)
  - APHASIA [None]
  - DELUSIONAL DISORDER, UNSPECIFIED TYPE [None]
  - LYMPHOMA [None]
  - MOVEMENT DISORDER [None]
  - PSYCHOTIC DISORDER [None]
  - TESTIS CANCER [None]
  - WEIGHT INCREASED [None]
